FAERS Safety Report 20973816 (Version 4)
Quarter: 2022Q3

REPORT INFORMATION
  Report Type: Spontaneous
  Country: FR (occurrence: FR)
  Receive Date: 20220617
  Receipt Date: 20220803
  Transmission Date: 20221027
  Serious: Yes (Hospitalization, Other)
  Sender: FDA-Public Use
  Company Number: FR-SA-SAC20220616000227

PATIENT
  Age: 60 Year
  Sex: Female
  Weight: 86 kg

DRUGS (4)
  1. AUBAGIO [Suspect]
     Active Substance: TERIFLUNOMIDE
     Indication: Multiple sclerosis
     Dosage: UNK
     Dates: start: 2019
  2. NICARDIPINE [Concomitant]
     Active Substance: NICARDIPINE
     Route: 048
  3. PREGABALIN [Concomitant]
     Active Substance: PREGABALIN
     Dosage: 50 - 50 - 100 MG
  4. KARDEGIC [Concomitant]
     Active Substance: ASPIRIN DL-LYSINE

REACTIONS (12)
  - Meningoencephalitis herpetic [Recovering/Resolving]
  - Haemorrhage [Unknown]
  - Limbic encephalitis [Unknown]
  - Memory impairment [Unknown]
  - Motor dysfunction [Unknown]
  - Hyperplasia [Unknown]
  - Aphasia [Unknown]
  - Dizziness [Unknown]
  - Vertigo [Unknown]
  - Headache [Unknown]
  - Nausea [Unknown]
  - Vomiting [Unknown]

NARRATIVE: CASE EVENT DATE: 20220602
